FAERS Safety Report 5209095-9 (Version None)
Quarter: 2007Q1

REPORT INFORMATION
  Report Type: 
  Country: None (occurrence: None)
  Receive Date: 20070111
  Receipt Date: 20070103
  Transmission Date: 20070707
  Serious: Yes (Other)
  Sender: FDA-Public Use
  Company Number: B0453139A

PATIENT
  Sex: Female

DRUGS (1)
  1. EPIVIR [Suspect]
     Indication: HEPATITIS B

REACTIONS (3)
  - CHROMOSOMAL MUTATION [None]
  - DISEASE RECURRENCE [None]
  - HEPATITIS B [None]
